FAERS Safety Report 4738827-9 (Version None)
Quarter: 2005Q3

REPORT INFORMATION
  Report Type: 
  Country: None (occurrence: None)
  Receive Date: 20050809
  Receipt Date: 20050426
  Transmission Date: 20060218
  Serious: Yes (Life-Threatening, Other)
  Sender: FDA-Public Use
  Company Number: JP-MERCK-0504USA04951

PATIENT
  Age: 64 Year
  Sex: Female

DRUGS (5)
  1. PEPCID [Suspect]
     Route: 048
     Dates: start: 20050415, end: 20050421
  2. MEDROL [Concomitant]
     Route: 048
     Dates: start: 20050325
  3. ULCERLMIN [Concomitant]
     Route: 048
     Dates: start: 20050408
  4. HALCION [Concomitant]
     Route: 048
     Dates: start: 20050409, end: 20050415
  5. BUFFERIN [Concomitant]
     Route: 048
     Dates: start: 20050421, end: 20050426

REACTIONS (3)
  - ATRIAL FIBRILLATION [None]
  - CEREBRAL INFARCTION [None]
  - LEUKOPENIA [None]
